FAERS Safety Report 5704842-1 (Version None)
Quarter: 2008Q2

REPORT INFORMATION
  Report Type: 
  Country: None (occurrence: None)
  Receive Date: 20080414
  Receipt Date: 20080402
  Transmission Date: 20081010
  Serious: Yes (Death, Hospitalization)
  Sender: FDA-Public Use
  Company Number: CA-ELI_LILLY_AND_COMPANY-CA200711006090

PATIENT
  Sex: Female
  Weight: 28.571 kg

DRUGS (2)
  1. FORTEO [Suspect]
     Indication: OSTEOPOROSIS
     Dosage: 20 UG, DAILY (1/D)
     Route: 058
     Dates: start: 20070219, end: 20071105
  2. CORTICOSTEROID NOS [Concomitant]
     Indication: RHEUMATOID ARTHRITIS

REACTIONS (5)
  - BLOOD PRESSURE DECREASED [None]
  - FALL [None]
  - GENERAL PHYSICAL HEALTH DETERIORATION [None]
  - HAEMATOMA [None]
  - MOBILITY DECREASED [None]
